FAERS Safety Report 13380354 (Version 1)
Quarter: 2017Q1

REPORT INFORMATION
  Report Type: Other
  Country: FR (occurrence: FR)
  Receive Date: 20170328
  Receipt Date: 20170328
  Transmission Date: 20170429
  Serious: Yes (Hospitalization, Other)
  Sender: FDA-Public Use
  Company Number: FR-APOTEX-2017AP009198

PATIENT
  Age: 37 Year
  Sex: Female

DRUGS (5)
  1. DEROXAT [Suspect]
     Active Substance: PAROXETINE HYDROCHLORIDE
     Indication: SUICIDE ATTEMPT
     Dosage: 28 DF, SINGLE
     Route: 048
     Dates: start: 20161017, end: 20161017
  2. APROVEL [Suspect]
     Active Substance: IRBESARTAN
     Indication: SUICIDE ATTEMPT
     Dosage: 15 DF, SINGLE
     Route: 048
     Dates: start: 20161017, end: 20161017
  3. TRANXENE T-TAB [Suspect]
     Active Substance: CLORAZEPATE DIPOTASSIUM
     Indication: SUICIDE ATTEMPT
     Dosage: 10 DF, SINGLE
     Route: 048
     Dates: start: 20161017, end: 20161017
  4. LOXAPAC                            /00401801/ [Suspect]
     Active Substance: LOXAPINE SUCCINATE
     Indication: SUICIDE ATTEMPT
     Dosage: 20 DF, SINGLE
     Route: 048
     Dates: start: 20161017, end: 20161017
  5. ZYPREXA [Suspect]
     Active Substance: OLANZAPINE
     Indication: SUICIDE ATTEMPT
     Dosage: 16 DF, SINGLE
     Route: 048
     Dates: start: 20161017, end: 20161017

REACTIONS (4)
  - Somnolence [Recovered/Resolved]
  - Tachycardia [Recovered/Resolved]
  - Toxicity to various agents [Recovered/Resolved]
  - Coma scale abnormal [Recovered/Resolved]

NARRATIVE: CASE EVENT DATE: 20161017
